FAERS Safety Report 12139313 (Version 4)
Quarter: 2016Q1

REPORT INFORMATION
  Report Type: Spontaneous
  Country: JP (occurrence: JP)
  Receive Date: 20160303
  Receipt Date: 20160322
  Transmission Date: 20160526
  Serious: Yes (Death)
  Sender: FDA-Public Use
  Company Number: JP-009507513-1602JPN013238

PATIENT
  Age: 68 Year
  Sex: Male

DRUGS (18)
  1. ADOFEED [Concomitant]
     Active Substance: FLURBIPROFEN
     Dosage: SEVEN PIECES,DAILY DOSE UNKNOWN
     Route: 065
  2. GRAMALIL [Concomitant]
     Active Substance: TIAPRIDE HYDROCHLORIDE
     Indication: INSOMNIA
     Dosage: 25 MG, QD, TOOK BEFORE SLEEP
     Route: 065
     Dates: start: 20150806
  3. BELSOMRA [Suspect]
     Active Substance: SUVOREXANT
     Indication: INSOMNIA
     Dosage: 15 MG, QD
     Route: 048
     Dates: start: 20150818, end: 20150819
  4. FUROSEMIDE. [Concomitant]
     Active Substance: FUROSEMIDE
     Dosage: 20 MG, QD
     Route: 065
  5. TRAZENTA [Concomitant]
     Active Substance: LINAGLIPTIN
     Indication: DIABETES MELLITUS
     Dosage: 5 MG, QD
     Route: 065
  6. SENNOSIDES. [Concomitant]
     Active Substance: SENNOSIDES
     Dosage: DAILY DOSE UNKNOWN
     Route: 065
  7. RINDERON (BETAMETHASONE SODIUM PHOSPHATE) [Concomitant]
     Active Substance: BETAMETHASONE SODIUM PHOSPHATE
     Dosage: DAILY DOSE UNKNOWN
     Route: 041
  8. RISPERDAL [Concomitant]
     Active Substance: RISPERIDONE
     Indication: INSOMNIA
  9. MAGMITT [Concomitant]
     Active Substance: MAGNESIUM OXIDE
     Dosage: 330 MG, TID
     Route: 065
  10. GLIMICRON [Concomitant]
     Active Substance: GLICLAZIDE
     Indication: DIABETES MELLITUS
     Dosage: 40 MG, BID
     Route: 065
  11. CALONAL [Concomitant]
     Active Substance: ACETAMINOPHEN
     Indication: PYREXIA
     Dosage: DAILY DOSE UNKNOWN AND AT THE TIME OF PYREXIA
     Route: 065
  12. ATELEC [Concomitant]
     Active Substance: CILNIDIPINE
     Indication: HYPERTENSION
     Dosage: 10 MG, BID
     Route: 048
  13. SPIRONOLACTONE. [Concomitant]
     Active Substance: SPIRONOLACTONE
     Dosage: 25 MG, QD
     Route: 065
  14. GRAMALIL [Concomitant]
     Active Substance: TIAPRIDE HYDROCHLORIDE
     Indication: IRRITABILITY
  15. FEBURIC [Concomitant]
     Active Substance: FEBUXOSTAT
     Dosage: 20 MG, QD
     Route: 065
  16. BEZAFIBRATE [Concomitant]
     Active Substance: BEZAFIBRATE
     Indication: DYSLIPIDAEMIA
     Dosage: 200 MG, BID
     Route: 065
  17. SUTENT [Concomitant]
     Active Substance: SUNITINIB MALATE
     Dosage: DAILY DOSE UNKNOWN
     Route: 048
  18. RISPERDAL [Concomitant]
     Active Substance: RISPERIDONE
     Indication: IRRITABILITY
     Dosage: DAILY DOSE UNKNOWN AND BEFORE SLEEP
     Route: 065
     Dates: start: 20150806

REACTIONS (2)
  - Death [Fatal]
  - Nocturnal dyspnoea [Unknown]

NARRATIVE: CASE EVENT DATE: 20150818
